FAERS Safety Report 11669982 (Version 4)
Quarter: 2017Q2

REPORT INFORMATION
  Report Type: Spontaneous
  Country: US (occurrence: US)
  Receive Date: 20151027
  Receipt Date: 20170530
  Transmission Date: 20170829
  Serious: Yes (Hospitalization, Other)
  Sender: FDA-Public Use
  Company Number: US-PFIZER INC-2015259943

PATIENT
  Age: 73 Year
  Sex: Female
  Weight: 87 kg

DRUGS (13)
  1. REVATIO [Suspect]
     Active Substance: SILDENAFIL CITRATE
     Indication: CHRONIC RESPIRATORY FAILURE
     Dosage: 60 MG, 3X/DAY
  2. DILTIAZEM. [Concomitant]
     Active Substance: DILTIAZEM
     Dosage: 360 MG, DAILY (A.M.)
  3. LOSARTAN. [Concomitant]
     Active Substance: LOSARTAN
     Dosage: 100 MG, DAILY
  4. REVATIO [Suspect]
     Active Substance: SILDENAFIL CITRATE
     Indication: PULMONARY HYPERTENSION
     Dosage: 20 MG, 3X/DAY, (MORNING, LUNCH, AND EVENING)
     Dates: start: 20120228
  5. REVATIO [Suspect]
     Active Substance: SILDENAFIL CITRATE
     Indication: ACUTE RESPIRATORY FAILURE
     Dosage: 40 MG, 3X/DAY
     Dates: start: 20120228
  6. WARFARIN [Concomitant]
     Active Substance: WARFARIN
     Dosage: UNK, DAILY
     Dates: end: 20150623
  7. FUROSEMIDE. [Concomitant]
     Active Substance: FUROSEMIDE
     Dosage: 40 MG, DAILY (A.M.)
  8. FISH OIL [Concomitant]
     Active Substance: FISH OIL
     Dosage: 1000 IU, 2X/DAY
  9. OXYGEN. [Concomitant]
     Active Substance: OXYGEN
     Dosage: 2 L, DAILY (24 HRS)
  10. REVATIO [Suspect]
     Active Substance: SILDENAFIL CITRATE
     Indication: HYPOXIA
     Dosage: 20 MG ORALLY, 3 TABLETS, 3 TIMES A DAY
     Route: 048
  11. POTASSIUM CHLORIDE. [Concomitant]
     Active Substance: POTASSIUM CHLORIDE
     Dosage: 20 MEQ, 2X/DAY
  12. CALCIUM CITRATE + D [Concomitant]
     Dosage: UNK, DAILY (CALCIUM CITRATE 600 MG +COLECALCIFEROL 500 IU)
  13. LOVASTATIN. [Concomitant]
     Active Substance: LOVASTATIN
     Dosage: 20 MG, DAILY (P.M.)

REACTIONS (14)
  - Product use issue [Unknown]
  - Haematoma [Recovered/Resolved]
  - Pulmonary hypertension [Not Recovered/Not Resolved]
  - Asthenia [Unknown]
  - Ulcer haemorrhage [Recovered/Resolved]
  - Condition aggravated [Unknown]
  - Duodenal ulcer [Unknown]
  - Peripheral swelling [Not Recovered/Not Resolved]
  - Pain in extremity [Not Recovered/Not Resolved]
  - Neuropathy peripheral [Unknown]
  - Chronic obstructive pulmonary disease [Not Recovered/Not Resolved]
  - Post procedural haemorrhage [Recovered/Resolved with Sequelae]
  - Dyspnoea [Not Recovered/Not Resolved]
  - Condition aggravated [Not Recovered/Not Resolved]

NARRATIVE: CASE EVENT DATE: 20120228
